FAERS Safety Report 7625360-X (Version None)
Quarter: 2011Q3

REPORT INFORMATION
  Report Type: 
  Country: None (occurrence: None)
  Receive Date: 20110721
  Receipt Date: 20110719
  Transmission Date: 20111222
  Serious: Yes (Hospitalization)
  Sender: FDA-Public Use
  Company Number: RU-BAYER-2011-062677

PATIENT
  Age: 50 Year
  Sex: Female

DRUGS (3)
  1. YAZ [Suspect]
     Indication: OVARIAN CYST
     Dosage: 1 DF, QD
     Route: 048
     Dates: start: 20110301, end: 20110501
  2. YAZ [Suspect]
     Dosage: 1 DF, QD
     Route: 048
     Dates: start: 20110629
  3. LEVOTHYROXINE SODIUM [Concomitant]
     Indication: THYROID DISORDER

REACTIONS (4)
  - METRORRHAGIA [None]
  - UTERINE POLYP [None]
  - ENDOMETRIAL HYPERTROPHY [None]
  - MENORRHAGIA [None]
